FAERS Safety Report 7799211 (Version 3)
Quarter: 2013Q4

REPORT INFORMATION
  Report Type: Spontaneous
  Country: US (occurrence: US)
  Receive Date: 20110204
  Receipt Date: 20131211
  Transmission Date: 20140711
  Serious: Yes (Hospitalization, Other)
  Sender: FDA-Public Use
  Company Number: US-JNJFOC-20110200002

PATIENT
  Age: 28 Year
  Sex: Female
  Weight: 77 kg

DRUGS (5)
  1. ORTHO EVRA [Suspect]
     Indication: CONTRACEPTION
     Route: 062
     Dates: start: 200208
  2. REBIF [Suspect]
     Indication: MULTIPLE SCLEROSIS
     Route: 058
     Dates: start: 20060117
  3. OPANA [Concomitant]
     Indication: PAIN
     Route: 065
     Dates: start: 2008, end: 201007
  4. OPANA [Concomitant]
     Indication: PAIN
     Route: 065
     Dates: start: 201007
  5. OPANA ER [Concomitant]
     Indication: PAIN
     Route: 065
     Dates: start: 2008

REACTIONS (5)
  - Pulmonary embolism [Recovering/Resolving]
  - Pregnancy with contraceptive patch [Recovered/Resolved]
  - Exposure during pregnancy [Recovered/Resolved]
  - Pain [Recovering/Resolving]
  - Medication error [Recovered/Resolved]
